FAERS Safety Report 8383477-9 (Version None)
Quarter: 2012Q1

REPORT INFORMATION
  Report Type: 
  Country: None (occurrence: None)
  Receive Date: 20120323
  Receipt Date: 20110321
  Transmission Date: 20120608
  Serious: Yes (Other)
  Sender: FDA-Public Use
  Company Number: 163-21880-11032519

PATIENT
  Age: 76 Year
  Sex: Male
  Weight: 89.8122 kg

DRUGS (20)
  1. TAMSULOSIN HCL [Concomitant]
  2. LANTUS [Concomitant]
  3. COUMADIN [Concomitant]
  4. JANUVIA [Concomitant]
  5. ENSURE (ENSURE) [Concomitant]
  6. REVLIMID [Suspect]
     Indication: MYELODYSPLASTIC SYNDROME
     Dosage: 5 MG, DAILY FOR 28 DAYS, PO
     Route: 048
     Dates: start: 20101101
  7. PROCRIT [Concomitant]
  8. COLCHICINE [Concomitant]
  9. GLIPIZIDE [Concomitant]
  10. OXYCODONE HCL [Concomitant]
  11. PREDNISONE TAB [Concomitant]
  12. VITAMIN B6 (PYRIDOXINE HYDROHCLORIDE) [Concomitant]
  13. LASIX [Concomitant]
  14. DIGOXIN [Concomitant]
  15. MULTIVITAMIN [Concomitant]
  16. LOVASTATIN [Concomitant]
  17. METOPROLOL TARTRATE [Concomitant]
  18. ULORIC [Concomitant]
  19. VITAMIN B12 [Concomitant]
  20. LISINOPRIL [Concomitant]

REACTIONS (3)
  - WEIGHT DECREASED [None]
  - DECREASED APPETITE [None]
  - DIARRHOEA [None]
